FAERS Safety Report 9311090 (Version 1)
Quarter: 2013Q2

REPORT INFORMATION
  Report Type: Spontaneous
  Country: US (occurrence: US)
  Receive Date: 20130528
  Receipt Date: 20130528
  Transmission Date: 20140414
  Serious: No
  Sender: FDA-Public Use
  Company Number: US-PFIZER INC-2013161063

PATIENT
  Age: 32 Year
  Sex: Female
  Weight: 79.37 kg

DRUGS (2)
  1. LYRICA [Suspect]
     Indication: NEURALGIA
     Dosage: 75 MG, 2X/DAY
     Route: 048
     Dates: start: 20130523, end: 20130524
  2. LORTAB [Interacting]
     Dosage: 500/7.5 MG, 3X/DAY
     Route: 048
     Dates: start: 20130520

REACTIONS (4)
  - Drug interaction [Not Recovered/Not Resolved]
  - Tremor [Not Recovered/Not Resolved]
  - Somnolence [Not Recovered/Not Resolved]
  - Skin mass [Not Recovered/Not Resolved]
